FAERS Safety Report 18701324 (Version 1)
Quarter: 2021Q1

REPORT INFORMATION
  Report Type: Spontaneous
  Country: CN (occurrence: CN)
  Receive Date: 20210105
  Receipt Date: 20210105
  Transmission Date: 20210419
  Serious: Yes (Other)
  Sender: FDA-Public Use
  Company Number: CN-ROCHE-2743788

PATIENT
  Age: 68 Year
  Sex: Male
  Weight: 60 kg

DRUGS (3)
  1. GLUCOSE [Concomitant]
     Active Substance: DEXTROSE
     Route: 042
  2. OXALIPLATIN. [Suspect]
     Active Substance: OXALIPLATIN
     Indication: CARDIAC NEOPLASM MALIGNANT
     Route: 041
     Dates: start: 20201224, end: 20201224
  3. XELODA [Suspect]
     Active Substance: CAPECITABINE
     Indication: CARDIAC NEOPLASM MALIGNANT
     Route: 048
     Dates: start: 20201224, end: 20201227

REACTIONS (1)
  - Myelosuppression [Recovering/Resolving]

NARRATIVE: CASE EVENT DATE: 20201227
